FAERS Safety Report 10145416 (Version 1)
Quarter: 2014Q2

REPORT INFORMATION
  Report Type: Spontaneous
  Country: US (occurrence: US)
  Receive Date: 20140501
  Receipt Date: 20140501
  Transmission Date: 20141212
  Serious: No
  Sender: FDA-Public Use
  Company Number: US-BIOGENIDEC-2014BI038463

PATIENT
  Age: 63 Year
  Sex: Female

DRUGS (16)
  1. TECFIDERA [Suspect]
     Indication: MULTIPLE SCLEROSIS
     Route: 048
     Dates: start: 20140204
  2. ARICEPT [Concomitant]
  3. CARDIZEM CD [Concomitant]
  4. COREG [Concomitant]
  5. CYMBALTA [Concomitant]
  6. DEXILANT [Concomitant]
  7. DIAZEPAM [Concomitant]
  8. DILAUDID [Concomitant]
  9. GABAPENTIN [Concomitant]
  10. LASIX [Concomitant]
  11. NORVASC [Concomitant]
  12. ONDANSETRON [Concomitant]
  13. PRAVASTATIN SODIUM [Concomitant]
  14. PREDNISONE [Concomitant]
  15. PROAIR HFA [Concomitant]
  16. SYMBICORT [Concomitant]

REACTIONS (2)
  - Tinnitus [Unknown]
  - Sinus congestion [Unknown]
